FAERS Safety Report 4393443-6 (Version None)
Quarter: 2004Q3

REPORT INFORMATION
  Report Type: 
  Country: None (occurrence: None)
  Receive Date: 20040701
  Receipt Date: 20040617
  Transmission Date: 20050211
  Serious: Yes (Other)
  Sender: FDA-Public Use
  Company Number: 2004220144FR

PATIENT
  Age: 52 Year
  Sex: Male

DRUGS (1)
  1. DELTASONE [Suspect]
     Indication: IRIDOCYCLITIS
     Dosage: ORAL
     Route: 048

REACTIONS (5)
  - HERPES SIMPLEX [None]
  - INFLAMMATION [None]
  - INTRAOCULAR PRESSURE INCREASED [None]
  - OPTIC ATROPHY [None]
  - RETINAL INFARCTION [None]
